FAERS Safety Report 14757836 (Version 2)
Quarter: 2018Q2

REPORT INFORMATION
  Report Type: Spontaneous
  Country: ZA (occurrence: ZA)
  Receive Date: 20180413
  Receipt Date: 20180430
  Transmission Date: 20180711
  Serious: Yes (Hospitalization)
  Sender: FDA-Public Use
  Company Number: ZA-NOVOPROD-594223

PATIENT
  Age: 59 Year
  Sex: Female

DRUGS (1)
  1. ESTROFEM [Suspect]
     Active Substance: ESTRADIOL CYPIONATE
     Indication: HORMONE REPLACEMENT THERAPY
     Dosage: 1.00 MG
     Route: 048
     Dates: start: 201710

REACTIONS (2)
  - Endoscopy upper gastrointestinal tract [Unknown]
  - Functional gastrointestinal disorder [Unknown]
